FAERS Safety Report 7478872-6 (Version None)
Quarter: 2011Q2

REPORT INFORMATION
  Report Type: 
  Country: None (occurrence: None)
  Receive Date: 20110513
  Receipt Date: 20110509
  Transmission Date: 20111010
  Serious: Yes (Hospitalization)
  Sender: FDA-Public Use
  Company Number: CA-SANOFI-AVENTIS-2011SA024446

PATIENT
  Age: 74 Year
  Sex: Female

DRUGS (11)
  1. LANTUS [Suspect]
  2. INSULIN [Concomitant]
     Indication: TYPE 2 DIABETES MELLITUS
     Route: 058
  3. ACETAMINOPHEN [Concomitant]
  4. LIPITOR [Concomitant]
  5. CITALOPRAM HYDROBROMIDE [Concomitant]
  6. LANTUS [Suspect]
     Indication: TYPE 2 DIABETES MELLITUS
     Route: 058
     Dates: start: 20051015
  7. LORATADINE [Concomitant]
  8. SODIUM PHOSPHATE MONOBASIC (ANHYDRATE) AND POTASSIUM BICARBONATE AND S [Concomitant]
  9. PLAVIX [Concomitant]
  10. SYNTHROID [Concomitant]
  11. VITAMIN D [Concomitant]
     Dosage: DOSE:1000 UNIT(S)

REACTIONS (3)
  - KETOACIDOSIS [None]
  - DEPRESSED LEVEL OF CONSCIOUSNESS [None]
  - BLOOD GLUCOSE INCREASED [None]
